FAERS Safety Report 5755305-9 (Version None)
Quarter: 2008Q2

REPORT INFORMATION
  Report Type: 
  Country: None (occurrence: None)
  Receive Date: 20080602
  Receipt Date: 20080523
  Transmission Date: 20081010
  Serious: Yes (Hospitalization)
  Sender: FDA-Public Use
  Company Number: CA-AMGEN-KDL277995

PATIENT
  Sex: Male
  Weight: 83.1 kg

DRUGS (6)
  1. ENBREL [Suspect]
     Indication: PSORIASIS
     Route: 058
     Dates: start: 20080311, end: 20080418
  2. ENBREL [Suspect]
     Indication: PSORIATIC ARTHROPATHY
  3. METHOTREXATE [Suspect]
     Route: 048
     Dates: start: 19980101, end: 20080416
  4. FOLIC ACID [Concomitant]
  5. PANTOPRAZOLE SODIUM [Concomitant]
  6. NAPROSYN [Concomitant]

REACTIONS (6)
  - ACUTE MYOCARDIAL INFARCTION [None]
  - EXCORIATION [None]
  - NECROTISING FASCIITIS STREPTOCOCCAL [None]
  - RENAL FAILURE [None]
  - SEPTIC SHOCK [None]
  - WOUND [None]
